FAERS Safety Report 6207001-1 (Version None)
Quarter: 2009Q2

REPORT INFORMATION
  Report Type: 
  Country: None (occurrence: None)
  Receive Date: 20090528
  Receipt Date: 20090519
  Transmission Date: 20091009
  Serious: Yes (Hospitalization)
  Sender: FDA-Public Use
  Company Number: PHHY2009GB07714

PATIENT
  Sex: Male

DRUGS (13)
  1. CLOZARIL [Suspect]
     Indication: SCHIZOPHRENIA
     Dosage: UNK
     Route: 048
     Dates: start: 20090120
  2. MIRTAZAPINE [Concomitant]
     Indication: DEPRESSION
     Dosage: 300 MG, UNK
     Route: 048
  3. EPILIM [Concomitant]
     Indication: AFFECTIVE DISORDER
     Dosage: 300 MG, BID
     Route: 065
  4. EPILIM [Concomitant]
     Dosage: 400 MG DAILY
  5. DIAZEPAM [Concomitant]
     Indication: ANXIETY
     Dosage: 2 MG, BID
  6. BECLOFORTE [Concomitant]
  7. VENTOLIN [Concomitant]
  8. OLANZAPINE [Concomitant]
     Dosage: 10 MG, BID
  9. SERETIDE [Concomitant]
     Indication: ASTHMA
     Dosage: 250 UG DAILY
  10. GENTAMICIN [Concomitant]
     Route: 042
  11. PREDNISOLONE [Concomitant]
  12. NOVOMIX [Concomitant]
     Dosage: 30 - 42 UNITS MANE AND 20 UNITS NOCTE
  13. SULFINPYRAZONE [Concomitant]
     Dosage: 100 MG DAILY

REACTIONS (8)
  - ASTHMA [None]
  - BLOOD UREA INCREASED [None]
  - GAMMA-GLUTAMYLTRANSFERASE INCREASED [None]
  - LIVER DISORDER [None]
  - MALAISE [None]
  - PNEUMONIA [None]
  - SPLENOMEGALY [None]
  - TYPE 2 DIABETES MELLITUS [None]
